FAERS Safety Report 18054889 (Version 1)
Quarter: 2020Q3

REPORT INFORMATION
  Report Type: Spontaneous
  Country: US (occurrence: US)
  Receive Date: 20200722
  Receipt Date: 20200722
  Transmission Date: 20201103
  Serious: No
  Sender: FDA-Public Use
  Company Number: US-AMGEN-USASP2020094203

PATIENT
  Age: 30 Year
  Sex: Female

DRUGS (1)
  1. OTEZLA [Suspect]
     Active Substance: APREMILAST
     Indication: PSORIASIS
     Dosage: 3.0 MILLIGRAM, BID
     Route: 048
     Dates: start: 20191230

REACTIONS (1)
  - Psoriasis [Not Recovered/Not Resolved]
